FAERS Safety Report 5856485-7 (Version None)
Quarter: 2008Q3

REPORT INFORMATION
  Report Type: 
  Country: None (occurrence: None)
  Receive Date: 20080825
  Receipt Date: 20080530
  Transmission Date: 20090109
  Serious: No
  Sender: FDA-Public Use
  Company Number: A0730368A

PATIENT
  Age: 39 Year
  Sex: Female

DRUGS (3)
  1. VERAMYST [Suspect]
     Dosage: 2SPR PER DAY
     Route: 045
  2. TYLENOL [Concomitant]
  3. ADVIL LIQUI-GELS [Concomitant]

REACTIONS (2)
  - DIZZINESS [None]
  - PALPITATIONS [None]
